FAERS Safety Report 5250989-6 (Version None)
Quarter: 2007Q1

REPORT INFORMATION
  Report Type: 
  Country: None (occurrence: None)
  Receive Date: 20070228
  Receipt Date: 20070219
  Transmission Date: 20070707
  Serious: Yes (Hospitalization)
  Sender: FDA-Public Use
  Company Number: IT-SANOFI-SYNTHELABO-A06200700078

PATIENT
  Sex: Male

DRUGS (2)
  1. XELODA [Suspect]
     Indication: COLON CANCER
     Route: 048
     Dates: end: 20061025
  2. ELOXATIN [Suspect]
     Indication: COLON CANCER
     Route: 041
     Dates: start: 20061010, end: 20061010

REACTIONS (3)
  - CAUDA EQUINA SYNDROME [None]
  - HEMIPARESIS [None]
  - NEUROPATHY PERIPHERAL [None]
